FAERS Safety Report 5367528-1 (Version None)
Quarter: 2007Q2

REPORT INFORMATION
  Report Type: 
  Country: None (occurrence: None)
  Receive Date: 20070622
  Receipt Date: 20061206
  Transmission Date: 20071010
  Serious: No
  Sender: FDA-Public Use
  Company Number: US-ASTRAZENECA-2006UW23428

PATIENT
  Age: 9 Year
  Sex: Female
  Weight: 49.1 kg

DRUGS (5)
  1. PULMICORT RESPULES [Suspect]
     Indication: ASTHMA
     Route: 055
     Dates: start: 20061106, end: 20061107
  2. ALBUTEROL [Concomitant]
     Indication: RHINITIS ALLERGIC
     Dates: start: 19971125
  3. CLARITIN [Concomitant]
     Indication: RHINITIS ALLERGIC
     Dates: start: 20020209
  4. SINGULAIR [Concomitant]
     Route: 048
     Dates: start: 20030123
  5. QVAR 40 [Concomitant]
     Indication: ASTHMA
     Dosage: 1 PUFF BID
     Route: 055
     Dates: start: 20051125

REACTIONS (4)
  - ENURESIS [None]
  - HEART RATE INCREASED [None]
  - INSOMNIA [None]
  - TREMOR [None]
